FAERS Safety Report 7651697 (Version 5)
Quarter: 2013Q4

REPORT INFORMATION
  Report Type: Spontaneous
  Country: US (occurrence: US)
  Receive Date: 20101101
  Receipt Date: 20131120
  Transmission Date: 20140711
  Serious: Yes (Other)
  Sender: FDA-Public Use
  Company Number: US-BAYER-201038401NA

PATIENT
  Age: 30 Year
  Sex: Female
  Weight: 90.7 kg

DRUGS (11)
  1. YASMIN [Suspect]
     Indication: PRODUCT USED FOR UNKNOWN INDICATION
     Dosage: UNK UNK, UNK
     Route: 048
     Dates: start: 200509
  2. YASMIN [Suspect]
     Indication: PRODUCT USED FOR UNKNOWN INDICATION
     Dosage: UNK
     Dates: start: 20060306
  3. YASMIN [Suspect]
     Indication: PRODUCT USED FOR UNKNOWN INDICATION
     Dosage: UNK
     Dates: start: 2001
  4. YASMIN [Suspect]
     Indication: PRODUCT USED FOR UNKNOWN INDICATION
  5. YAZ [Suspect]
     Indication: PRODUCT USED FOR UNKNOWN INDICATION
     Route: 048
     Dates: start: 200509
  6. LIPITOR [Concomitant]
     Dosage: 10 MG, UNK
     Route: 048
  7. LEXAPRO [Concomitant]
     Dosage: 20 MG, UNK
     Route: 048
  8. METFORMIN [Concomitant]
     Dosage: 500 MG, UNK
     Route: 048
  9. ROXICET [Concomitant]
     Route: 048
  10. GLUCOPHAGE [Concomitant]
  11. LORAZEPAM [Concomitant]

REACTIONS (4)
  - Cholecystectomy [Unknown]
  - Cholecystitis chronic [Unknown]
  - Chest pain [Unknown]
  - Cholelithiasis [None]
